FAERS Safety Report 5203629-6 (Version None)
Quarter: 2007Q1

REPORT INFORMATION
  Report Type: 
  Country: None (occurrence: None)
  Receive Date: 20070110
  Receipt Date: 20070105
  Transmission Date: 20070707
  Serious: Yes (Other)
  Sender: FDA-Public Use
  Company Number: 2007UW00377

PATIENT
  Sex: Female

DRUGS (6)
  1. NEXIUM [Suspect]
     Indication: DYSPEPSIA
     Route: 048
     Dates: start: 20040101
  2. NEXIUM [Suspect]
     Route: 048
  3. THYROID TAB [Concomitant]
  4. VITAMIN E [Concomitant]
  5. CALCIUM/VITAMIN D [Concomitant]
  6. ASPIRIN [Concomitant]

REACTIONS (3)
  - CHRONIC OBSTRUCTIVE PULMONARY DISEASE [None]
  - DYSPNOEA [None]
  - INCREASED UPPER AIRWAY SECRETION [None]
